FAERS Safety Report 9509593 (Version 1)
Quarter: 2013Q3

REPORT INFORMATION
  Report Type: Spontaneous
  Country: US (occurrence: US)
  Receive Date: 20130909
  Receipt Date: 20130909
  Transmission Date: 20140515
  Serious: No
  Sender: FDA-Public Use
  Company Number: US-BRISTOL-MYERS SQUIBB COMPANY-18926063

PATIENT
  Age: 12 Year
  Sex: Male

DRUGS (3)
  1. ABILIFY [Suspect]
     Dosage: INITIALLY 5MG ONCE DAILY
  2. TRILEPTAL [Concomitant]
  3. CLONIDINE HCL [Concomitant]

REACTIONS (1)
  - Dystonia [Recovered/Resolved]
